FAERS Safety Report 8624956-6 (Version None)
Quarter: 2012Q3

REPORT INFORMATION
  Report Type: 
  Country: None (occurrence: None)
  Receive Date: 20120827
  Receipt Date: 20120821
  Transmission Date: 20120928
  Serious: Yes (Death)
  Sender: FDA-Public Use
  Company Number: GB-PFIZER INC-2012204426

PATIENT
  Age: 80 Year
  Sex: Female
  Weight: 130 kg

DRUGS (10)
  1. WARFARIN SODIUM [Interacting]
     Dosage: 1 MG, UNK
     Dates: start: 20120721
  2. CAPTOPRIL [Concomitant]
     Dosage: 50 MG, 3X/DAY
  3. BENDROFLUMETHIAZIDE [Concomitant]
     Dosage: 2.5 MG, 1X/DAY
  4. ADALAT CC [Concomitant]
     Dosage: 1 DF, 1X/DAY
  5. CODEINE [Concomitant]
     Indication: PAIN
     Dosage: 15 MG, AS NEEDED
  6. CLINDAMYCIN HCL [Suspect]
     Indication: CELLULITIS
     Dosage: 450 MG, 4X/DAY
     Route: 048
     Dates: start: 20111017, end: 20111025
  7. DOXAZOSIN [Concomitant]
     Dosage: 1 MG, 1X/DAY
  8. ATENOLOL [Concomitant]
     Dosage: 50 MG, 1X/DAY
  9. PHENOXYMETHYLPENICILLIN [Concomitant]
     Dosage: 250 MG, 2X/DAY
  10. PARACETAMOL [Concomitant]
     Indication: PAIN
     Dosage: 500 MG, AS NEEDED

REACTIONS (3)
  - COAGULOPATHY [None]
  - RETROPERITONEAL HAEMORRHAGE [None]
  - DRUG INTERACTION [None]
